FAERS Safety Report 4630758-8 (Version None)
Quarter: 2005Q2

REPORT INFORMATION
  Report Type: 
  Country: None (occurrence: None)
  Receive Date: 20050406
  Receipt Date: 20050325
  Transmission Date: 20051028
  Serious: Yes (Hospitalization, Other)
  Sender: FDA-Public Use
  Company Number: KII-2005-0015642

PATIENT
  Age: 35 Year
  Sex: Male

DRUGS (9)
  1. OXYCONTIN [Suspect]
     Dosage: ORAL
     Route: 048
  2. AMITRIPTYLINE HCL [Suspect]
     Dosage: ORAL
     Route: 048
  3. MUSCLE RELAXANT() [Suspect]
     Dosage: ORAL
     Route: 048
  4. HYPNOTICS AND SEDATIVES () [Suspect]
     Dosage: ORAL
     Route: 048
  5. ANTIINFLAMMATORY/ANTIRHEMATIC PRODUCTS) [Suspect]
     Dosage: ORAL
     Route: 048
  6. SSRI() [Suspect]
     Dosage: ORAL
     Route: 048
  7. ACETAMINOPHEN W/CODEINE (PARACETAMOL) [Suspect]
     Dosage: ORAL
     Route: 048
  8. FIORINAL (ACETYLSALICYCLIC ACID, CAFFEINE, BUTALBITAL) [Suspect]
     Dosage: ORAL
     Route: 048
  9. ASPIRIN [Suspect]
     Dosage: ORAL
     Route: 048

REACTIONS (8)
  - ALANINE AMINOTRANSFERASE INCREASED [None]
  - ASPARTATE AMINOTRANSFERASE INCREASED [None]
  - CONFUSIONAL STATE [None]
  - INTENTIONAL MISUSE [None]
  - RENAL IMPAIRMENT [None]
  - SOMNOLENCE [None]
  - SUICIDE ATTEMPT [None]
  - TACHYCARDIA [None]
